FAERS Safety Report 16194223 (Version 1)
Quarter: 2019Q2

REPORT INFORMATION
  Report Type: Spontaneous
  Country: DE (occurrence: DE)
  Receive Date: 20190414
  Receipt Date: 20190414
  Transmission Date: 20190711
  Serious: Yes (Hospitalization, Other)
  Sender: FDA-Public Use
  Company Number: DE-DEXPHARM-20190239

PATIENT
  Age: 83 Year
  Sex: Female

DRUGS (1)
  1. CHLORHEXAMED FORTE 0.2% [Suspect]
     Active Substance: CHLORHEXIDINE GLUCONATE
     Dosage: 2X EVERY DAY

REACTIONS (2)
  - Tongue discomfort [Unknown]
  - Angioedema [Unknown]

NARRATIVE: CASE EVENT DATE: 20190226
